FAERS Safety Report 16826434 (Version 1)
Quarter: 2019Q3

REPORT INFORMATION
  Report Type: Spontaneous
  Country: US (occurrence: US)
  Receive Date: 20190919
  Receipt Date: 20190919
  Transmission Date: 20191005
  Serious: Yes (Other)
  Sender: FDA-Public Use
  Company Number: US-PFIZER INC-2019397431

PATIENT
  Age: 76 Year
  Sex: Female

DRUGS (5)
  1. ZOLOFT [Suspect]
     Active Substance: SERTRALINE HYDROCHLORIDE
     Dosage: UNK UNK, 1X/DAY (AT NIGHT)
  2. ATIVAN [Concomitant]
     Active Substance: LORAZEPAM
     Dosage: UNK
  3. TRAMADOL. [Interacting]
     Active Substance: TRAMADOL
     Dosage: UNK UNK, 1X/DAY (IN THE MORNING)
  4. OXYCODONE [Interacting]
     Active Substance: OXYCODONE
     Dosage: UNK
  5. TRAZODONE [Concomitant]
     Active Substance: TRAZODONE HYDROCHLORIDE

REACTIONS (9)
  - Product dose omission [Unknown]
  - Memory impairment [Unknown]
  - Irritability [Unknown]
  - Personality change [Unknown]
  - Behaviour disorder [Unknown]
  - Aggression [Unknown]
  - Mood altered [Unknown]
  - Arthropathy [Unknown]
  - Drug interaction [Unknown]
